FAERS Safety Report 4854169-5 (Version None)
Quarter: 2005Q4

REPORT INFORMATION
  Report Type: 
  Country: None (occurrence: None)
  Receive Date: 20051125
  Receipt Date: 20050621
  Transmission Date: 20060501
  Serious: Yes (Life-Threatening, Hospitalization)
  Sender: FDA-Public Use
  Company Number: JP-JNJFOC-20050605342

PATIENT
  Age: 32 Year
  Sex: Male

DRUGS (2)
  1. TAVANIC (LEVOFLOXACIN) UNSPECIFIED [Suspect]
     Indication: SINUSITIS
     Dosage: 500 MG, IN 1 DAY, ORAL
     Route: 048
     Dates: start: 20050513, end: 20050513
  2. AMLOC (AMLODIPINE BESILATE) UNKNOWN [Concomitant]

REACTIONS (1)
  - ANAPHYLACTIC REACTION [None]
